FAERS Safety Report 9427110 (Version 1)
Quarter: 2013Q3

REPORT INFORMATION
  Report Type: Report from Study
  Country: US (occurrence: US)
  Receive Date: 20130730
  Receipt Date: 20130730
  Transmission Date: 20140515
  Serious: No
  Sender: FDA-Public Use
  Company Number: US-ABBOTT-12P-163-0965945-00

PATIENT
  Sex: Female
  Weight: 70.37 kg

DRUGS (9)
  1. NIASPAN (COATED) 500MG [Suspect]
     Indication: BLOOD TRIGLYCERIDES INCREASED
     Dosage: DOSAGE INCREASED
     Dates: start: 200812
  2. NIASPAN (COATED) 500MG [Suspect]
     Dosage: 500MGX2 PILLS AT NIGHT,DOSAGE INCREASED
  3. NIASPAN (COATED) 500MG [Suspect]
     Dosage: DOSAGE DECREASED
     Dates: end: 201205
  4. NIASPAN (COATED) 500MG [Suspect]
     Dosage: 500MGX2 PILLS AT NIGHT
     Dates: start: 201205
  5. ASPIRIN [Concomitant]
     Indication: PRODUCT USED FOR UNKNOWN INDICATION
     Dosage: 81MG DAILY
  6. GEMFIBROZIL [Concomitant]
     Indication: PRODUCT USED FOR UNKNOWN INDICATION
  7. EYEPROMISE RESTORE [Concomitant]
     Indication: PRODUCT USED FOR UNKNOWN INDICATION
  8. OMEPRAZOL [Concomitant]
     Indication: PRODUCT USED FOR UNKNOWN INDICATION
  9. FISH OIL [Concomitant]
     Indication: PRODUCT USED FOR UNKNOWN INDICATION

REACTIONS (5)
  - Hypertension [Unknown]
  - Heart rate increased [Recovered/Resolved]
  - Generalised erythema [Not Recovered/Not Resolved]
  - Pruritus [Not Recovered/Not Resolved]
  - Flushing [Not Recovered/Not Resolved]
